FAERS Safety Report 14929969 (Version 3)
Quarter: 2018Q3

REPORT INFORMATION
  Report Type: Spontaneous
  Country: US (occurrence: US)
  Receive Date: 20180523
  Receipt Date: 20180706
  Transmission Date: 20181010
  Serious: Yes (Hospitalization, Other)
  Sender: FDA-Public Use
  Company Number: US-GLAXOSMITHKLINE-US2018090572

PATIENT
  Age: 62 Year
  Sex: Male

DRUGS (10)
  1. DALIRESP [Concomitant]
     Active Substance: ROFLUMILAST
  2. PROAIR HFA [Concomitant]
     Active Substance: ALBUTEROL SULFATE
  3. CARVEDILOL. [Concomitant]
     Active Substance: CARVEDILOL
  4. CLOPIDOGREL [Concomitant]
     Active Substance: CLOPIDOGREL BISULFATE
  5. FENOFIBRATE. [Concomitant]
     Active Substance: FENOFIBRATE
  6. ADVAIR DISKUS [Suspect]
     Active Substance: FLUTICASONE PROPIONATE\SALMETEROL XINAFOATE
     Indication: CHRONIC OBSTRUCTIVE PULMONARY DISEASE
     Dosage: 1 PUFF(S), BID
     Route: 055
     Dates: start: 2016, end: 201805
  7. LEVOTHYROXINE. [Concomitant]
     Active Substance: LEVOTHYROXINE
  8. ALBUTEROL. [Concomitant]
     Active Substance: ALBUTEROL
  9. ASPIRIN. [Concomitant]
     Active Substance: ASPIRIN
  10. ATORVASTATIN [Concomitant]
     Active Substance: ATORVASTATIN

REACTIONS (6)
  - Chronic obstructive pulmonary disease [Recovered/Resolved]
  - Intensive care [Recovered/Resolved]
  - Stent placement [Recovered/Resolved]
  - Oxygen saturation decreased [Unknown]
  - Cardiac operation [Recovered/Resolved]
  - Wheezing [Unknown]

NARRATIVE: CASE EVENT DATE: 2016
